FAERS Safety Report 12306264 (Version 1)
Quarter: 2016Q2

REPORT INFORMATION
  Report Type: Spontaneous
  Country: NL (occurrence: NL)
  Receive Date: 20160426
  Receipt Date: 20160426
  Transmission Date: 20160815
  Serious: Yes (Other)
  Sender: FDA-Public Use
  Company Number: PHHY2015NL091340

PATIENT
  Age: 41 Year
  Sex: Female

DRUGS (2)
  1. SOMAVERT [Concomitant]
     Active Substance: PEGVISOMANT
     Indication: PRODUCT USED FOR UNKNOWN INDICATION
     Dosage: 20 MG, QD
     Route: 065
     Dates: start: 20150727
  2. OCTREOTIDE. [Suspect]
     Active Substance: OCTREOTIDE
     Indication: PRODUCT USED FOR UNKNOWN INDICATION
     Dosage: 20 MG, ONCE PER FOUR WEEK 2 INJECTION
     Route: 058

REACTIONS (6)
  - Eclampsia [Unknown]
  - Hypertension [Unknown]
  - Proteinuria [Unknown]
  - Seizure [Unknown]
  - Postpartum haemorrhage [Unknown]
  - Exposure during pregnancy [Unknown]
